FAERS Safety Report 7734001-2 (Version None)
Quarter: 2011Q3

REPORT INFORMATION
  Report Type: 
  Country: None (occurrence: None)
  Receive Date: 20110907
  Receipt Date: 20110826
  Transmission Date: 20111222
  Serious: Yes (Disabling)
  Sender: FDA-Public Use
  Company Number: CA-ELI_LILLY_AND_COMPANY-CA201104002909

PATIENT
  Age: 88 Year
  Sex: Female
  Weight: 18.231 kg

DRUGS (14)
  1. SYNTHROID [Concomitant]
  2. CALCIUM CARBONATE [Concomitant]
  3. PANTOLOC                           /01263202/ [Concomitant]
  4. CALCITONIN SALMON [Concomitant]
     Dosage: 200 U, UNK
  5. CARBOCAL D [Concomitant]
     Dosage: UNK, BID
  6. FLOVENT [Concomitant]
  7. PANTOPRAZOLE [Concomitant]
  8. CODEINE [Concomitant]
  9. TYLENOL                                 /SCH/ [Concomitant]
     Dosage: 1000 MG, QID
  10. SYNTHROID [Concomitant]
  11. FORTEO [Suspect]
     Indication: OSTEOPOROSIS
     Dosage: 20 UG, DAILY (1/D)
     Route: 058
     Dates: start: 20100729, end: 20100826
  12. PREDNISONE [Concomitant]
     Dosage: 5 MG, UNK
     Route: 048
  13. NORVASC [Concomitant]
     Dosage: 2.5 MG, UNK
  14. ADVAIR DISKUS 100/50 [Concomitant]

REACTIONS (11)
  - DRUG INTOLERANCE [None]
  - ABASIA [None]
  - VOMITING [None]
  - PAIN [None]
  - FATIGUE [None]
  - HYPERHIDROSIS [None]
  - DYSSTASIA [None]
  - DECREASED APPETITE [None]
  - DIZZINESS [None]
  - NAUSEA [None]
  - ASTHENIA [None]
